FAERS Safety Report 8344198-1 (Version None)
Quarter: 2012Q2

REPORT INFORMATION
  Report Type: 
  Country: None (occurrence: None)
  Receive Date: 20120508
  Receipt Date: 20120427
  Transmission Date: 20120825
  Serious: Yes (Other)
  Sender: FDA-Public Use
  Company Number: PHHY2012JP008164

PATIENT
  Age: 78 Year
  Sex: Female

DRUGS (8)
  1. OLMESARTAN MEDOXOMIL [Concomitant]
     Dosage: 10 MG
     Route: 048
  2. AMLODIPINE [Concomitant]
     Dosage: 5 MG
     Route: 048
  3. REZALTAS COMBINATION [Concomitant]
     Dosage: 1 DF
     Route: 048
     Dates: start: 20110712
  4. DOXAZOSIN MESYLATE [Concomitant]
     Dosage: 4 MG
  5. DOXAZOSIN MESYLATE [Concomitant]
     Dosage: 0.5 MG
     Dates: start: 20110712
  6. RASILEZ [Suspect]
     Indication: HYPERTENSION
     Dosage: 150 MG
     Route: 048
     Dates: start: 20101027, end: 20120111
  7. CALBLOCK [Concomitant]
     Dosage: 8 MG
     Route: 048
     Dates: start: 20110712
  8. BISOPROLOL FUMARATE [Concomitant]
     Dosage: 2.5 MG
     Route: 048

REACTIONS (2)
  - ALBUMIN URINE PRESENT [None]
  - BLOOD POTASSIUM INCREASED [None]
